FAERS Safety Report 11294186 (Version 1)
Quarter: 2015Q3

REPORT INFORMATION
  Report Type: Spontaneous
  Country: US (occurrence: US)
  Receive Date: 20150722
  Receipt Date: 20150722
  Transmission Date: 20151125
  Serious: No
  Sender: FDA-Public Use
  Company Number: US-ELI_LILLY_AND_COMPANY-US200801004613

PATIENT
  Age: 68 Year
  Sex: Female

DRUGS (4)
  1. AXID [Concomitant]
     Active Substance: NIZATIDINE
     Dosage: UNK, AS NEEDED
  2. OSCAL [Concomitant]
     Active Substance: CALCIUM CARBONATE
     Dosage: UNK, 2/D
  3. BABY ASPIRIN [Concomitant]
     Active Substance: ASPIRIN
  4. EVISTA [Suspect]
     Active Substance: RALOXIFENE HYDROCHLORIDE
     Indication: OSTEOPOROSIS
     Dosage: 60 MG, DAILY (1/D)
     Dates: start: 19990628

REACTIONS (16)
  - Back pain [Unknown]
  - Confusional state [Unknown]
  - Vertigo [Unknown]
  - Musculoskeletal pain [Unknown]
  - Pain in extremity [Unknown]
  - Bone cyst [Unknown]
  - Dizziness [Unknown]
  - Alopecia [Unknown]
  - Eructation [Unknown]
  - Vision blurred [Unknown]
  - Abdominal pain upper [Unknown]
  - Peripheral coldness [Unknown]
  - Muscular weakness [Unknown]
  - Headache [Unknown]
  - Musculoskeletal chest pain [Unknown]
  - Oesophageal spasm [Unknown]

NARRATIVE: CASE EVENT DATE: 1999
